FAERS Safety Report 5148556-8 (Version None)
Quarter: 2006Q4

REPORT INFORMATION
  Report Type: 
  Country: None (occurrence: None)
  Receive Date: 20061106
  Receipt Date: 20061026
  Transmission Date: 20070319
  Serious: Yes (Other)
  Sender: FDA-Public Use
  Company Number: 2006131793

PATIENT
  Age: 48 Year
  Sex: Female

DRUGS (1)
  1. ROGAINE [Suspect]
     Dosage: 1ML DAILY, TOPICAL
     Route: 061
     Dates: start: 20060301, end: 20061011

REACTIONS (7)
  - CARDIAC FAILURE [None]
  - CARDIOMYOPATHY [None]
  - CHEST DISCOMFORT [None]
  - DRUG INEFFECTIVE [None]
  - FLUID RETENTION [None]
  - HYPERTENSION [None]
  - TACHYCARDIA [None]
